FAERS Safety Report 11732456 (Version 2)
Quarter: 2015Q4

REPORT INFORMATION
  Report Type: Spontaneous
  Country: US (occurrence: US)
  Receive Date: 20151113
  Receipt Date: 20151217
  Transmission Date: 20160304
  Serious: Yes (Life-Threatening, Hospitalization, Disabling, Other)
  Sender: FDA-Public Use
  Company Number: US-009507513-1511USA006092

PATIENT
  Sex: Female

DRUGS (10)
  1. ISENTRESS [Suspect]
     Active Substance: RALTEGRAVIR POTASSIUM
     Indication: HIV INFECTION
     Dosage: 400 MG, TWICE DAILY
     Route: 048
  2. AMLODIPINE [Concomitant]
     Active Substance: AMLODIPINE BESYLATE
  3. SELZENTRY [Concomitant]
     Active Substance: MARAVIROC
  4. CLONIDINE. [Concomitant]
     Active Substance: CLONIDINE
  5. ASPIRIN. [Concomitant]
     Active Substance: ASPIRIN
  6. AMIODARONE [Concomitant]
     Active Substance: AMIODARONE
  7. LIPITOR [Concomitant]
     Active Substance: ATORVASTATIN CALCIUM
  8. COREG [Concomitant]
     Active Substance: CARVEDILOL
  9. INTELENCE [Concomitant]
     Active Substance: ETRAVIRINE
  10. LAMIVUDINE. [Concomitant]
     Active Substance: LAMIVUDINE

REACTIONS (2)
  - Encephalopathy [Not Recovered/Not Resolved]
  - Respiratory distress [Not Recovered/Not Resolved]
